FAERS Safety Report 12233887 (Version 1)
Quarter: 2016Q2

REPORT INFORMATION
  Report Type: Spontaneous
  Country: US (occurrence: None)
  Receive Date: 20160401
  Receipt Date: 20160401
  Transmission Date: 20160815
  Serious: Yes (Other)
  Sender: FDA-Public Use
  Company Number: None

PATIENT
  Age: 64 Year
  Sex: Female
  Weight: 78.93 kg

DRUGS (12)
  1. LEVOFLOXACIN. [Suspect]
     Active Substance: LEVOFLOXACIN
     Indication: TOOTH EXTRACTION
     Route: 048
     Dates: start: 20160226, end: 20160301
  2. LOSARTAN. [Concomitant]
     Active Substance: LOSARTAN
  3. COQ10 [Concomitant]
     Active Substance: UBIDECARENONE
  4. POTASSIUM [Concomitant]
     Active Substance: POTASSIUM
  5. MAGNESIUM [Concomitant]
     Active Substance: MAGNESIUM
  6. BYSTOLIC [Concomitant]
     Active Substance: NEBIVOLOL HYDROCHLORIDE
  7. BREO ELLIPTA [Concomitant]
     Active Substance: FLUTICASONE FUROATE\VILANTEROL TRIFENATATE
  8. LIOTHYRONINE [Concomitant]
     Active Substance: LIOTHYRONINE
  9. FUROSEMIDE. [Concomitant]
     Active Substance: FUROSEMIDE
  10. FENOFIBRATE. [Concomitant]
     Active Substance: FENOFIBRATE
  11. MONTELUKAST SODIUM. [Concomitant]
     Active Substance: MONTELUKAST SODIUM
  12. FISH OIL [Concomitant]
     Active Substance: FISH OIL

REACTIONS (8)
  - Ocular discomfort [None]
  - Arthralgia [None]
  - Tendon pain [None]
  - Tendon rupture [None]
  - Ear discomfort [None]
  - Headache [None]
  - Pain in extremity [None]
  - Swelling [None]

NARRATIVE: CASE EVENT DATE: 20160301
